FAERS Safety Report 6882871-2 (Version None)
Quarter: 2010Q3

REPORT INFORMATION
  Report Type: 
  Country: None (occurrence: None)
  Receive Date: 20100729
  Receipt Date: 20100721
  Transmission Date: 20110219
  Serious: Yes (Disabling)
  Sender: FDA-Public Use
  Company Number: DK-ROCHE-716734

PATIENT
  Sex: Female

DRUGS (3)
  1. BEVACIZUMAB [Suspect]
     Indication: GLIOMA
     Route: 042
     Dates: start: 20100107, end: 20100302
  2. BEVACIZUMAB [Suspect]
     Route: 042
     Dates: start: 20100316
  3. IRINOTECAN HCL [Suspect]
     Indication: GLIOMA
     Route: 065
     Dates: start: 20100107

REACTIONS (1)
  - OSTEONECROSIS OF JAW [None]
